FAERS Safety Report 5253530-7 (Version None)
Quarter: 2007Q1

REPORT INFORMATION
  Report Type: 
  Country: None (occurrence: None)
  Receive Date: 20070301
  Receipt Date: 20070219
  Transmission Date: 20070707
  Serious: Yes (Other)
  Sender: FDA-Public Use
  Company Number: CA-PFIZER INC-2007013738

PATIENT
  Age: 61 Year
  Sex: Male

DRUGS (6)
  1. XALATAN [Suspect]
     Route: 047
  2. COSOPT [Interacting]
  3. ALLOPURINOL SODIUM [Concomitant]
  4. LIPITOR [Concomitant]
     Route: 048
  5. GLUCOSAMINE [Concomitant]
  6. COENZYME Q10 [Concomitant]

REACTIONS (3)
  - DRUG INTERACTION [None]
  - DRY SKIN [None]
  - INFECTION [None]
